FAERS Safety Report 5602060-9 (Version None)
Quarter: 2008Q1

REPORT INFORMATION
  Report Type: 
  Country: None (occurrence: None)
  Receive Date: 20080122
  Receipt Date: 20080122
  Transmission Date: 20080703
  Serious: Yes (Hospitalization)
  Sender: FDA-Public Use
  Company Number: None

PATIENT
  Age: 70 Year
  Sex: Male
  Weight: 64.05 kg

DRUGS (2)
  1. HYDROXYZINE [Suspect]
     Indication: SLEEP DISORDER
     Dosage: 10MG  HS  PO
     Route: 048
     Dates: start: 20070516, end: 20070725
  2. MERCAPTOPURINE [Suspect]
     Indication: AUTOIMMUNE HEPATITIS
     Dosage: 75MG  EVERY DAY PO
     Route: 048
     Dates: start: 20071026

REACTIONS (6)
  - DIARRHOEA [None]
  - DIZZINESS [None]
  - HAEMOGLOBIN DECREASED [None]
  - HAEMORRHAGE [None]
  - NAUSEA [None]
  - VOMITING [None]
